FAERS Safety Report 20380103 (Version 3)
Quarter: 2022Q3

REPORT INFORMATION
  Report Type: Report from Study
  Country: JP (occurrence: JP)
  Receive Date: 20220126
  Receipt Date: 20220721
  Transmission Date: 20221027
  Serious: Yes (Other)
  Sender: FDA-Public Use
  Company Number: JP-MSD-M2022-01377

PATIENT
  Age: 78 Year
  Sex: Female
  Weight: 68 kg

DRUGS (2)
  1. PEMBROLIZUMAB [Suspect]
     Active Substance: PEMBROLIZUMAB
     Indication: Renal cell carcinoma stage IV
     Dosage: 200 MILLIGRAM, Q3W
     Route: 041
     Dates: start: 20211206, end: 20220418
  2. INLYTA [Concomitant]
     Active Substance: AXITINIB
     Indication: Renal cell carcinoma stage IV
     Dosage: 5 MILLIGRAM, BID
     Route: 065
     Dates: start: 20211206, end: 20220207

REACTIONS (5)
  - Duodenal ulcer [Recovered/Resolved]
  - Fall [Recovered/Resolved]
  - Decreased appetite [Recovering/Resolving]
  - Transaminases increased [Not Recovered/Not Resolved]
  - Off label use [Unknown]

NARRATIVE: CASE EVENT DATE: 20220119
